FAERS Safety Report 9788116 (Version 1)
Quarter: 2013Q4

REPORT INFORMATION
  Report Type: Spontaneous
  Country: US (occurrence: None)
  Receive Date: 20131227
  Receipt Date: 20131227
  Transmission Date: 20140711
  Serious: Yes (Hospitalization)
  Sender: FDA-Public Use
  Company Number: None

PATIENT
  Age: 38 Year
  Sex: Male
  Weight: 114.4 kg

DRUGS (8)
  1. COUMADIN [Suspect]
     Indication: DEEP VEIN THROMBOSIS
     Dosage: CHRONIC
     Route: 048
  2. HYDROXYZINE [Concomitant]
  3. PHENERGAN [Concomitant]
  4. GABAPENTIN [Concomitant]
  5. METHADONE [Concomitant]
  6. LYRICA [Concomitant]
  7. OPANA [Concomitant]
  8. BACLOFEN [Concomitant]

REACTIONS (5)
  - Drug abuse [None]
  - Haemarthrosis [None]
  - Coagulopathy [None]
  - International normalised ratio increased [None]
  - Drug dependence [None]
